FAERS Safety Report 8465071-4 (Version None)
Quarter: 2012Q2

REPORT INFORMATION
  Report Type: 
  Country: None (occurrence: None)
  Receive Date: 20120626
  Receipt Date: 20120618
  Transmission Date: 20120825
  Serious: Yes (Other)
  Sender: FDA-Public Use
  Company Number: US-BAYER-2012-060987

PATIENT
  Age: 40 Year
  Sex: Female
  Weight: 60.317 kg

DRUGS (9)
  1. YASMIN [Suspect]
  2. FLUOXETINE [Concomitant]
     Indication: DEPRESSION
     Dosage: UNK
     Dates: start: 20060101
  3. NEXIUM [Concomitant]
     Indication: GASTROOESOPHAGEAL REFLUX DISEASE
     Dosage: 40 MG,MORNING
     Dates: start: 20040801
  4. UNCODEABLE ^UNCLASSIFIABLE^ [Concomitant]
     Dosage: 137 MCG
  5. SF 5000 PLUS [Concomitant]
  6. OPTIVAR [Concomitant]
     Dosage: 0.05 %, DROPS
  7. TUSSI-12D [Concomitant]
     Dosage: UNK
  8. NEXIUM [Concomitant]
     Dosage: 20 MG, AT BEDTIME
     Dates: start: 20051221
  9. NASACORT AQ [Concomitant]

REACTIONS (1)
  - DEEP VEIN THROMBOSIS [None]
